FAERS Safety Report 16952898 (Version 1)
Quarter: 2019Q4

REPORT INFORMATION
  Report Type: Spontaneous
  Country: US (occurrence: US)
  Receive Date: 20191023
  Receipt Date: 20191023
  Transmission Date: 20200122
  Serious: Yes (Life-Threatening, Hospitalization, Other)
  Sender: FDA-Public Use
  Company Number: US-HIKMA PHARMACEUTICALS USA INC.-US-H14001-19-05435

PATIENT
  Age: 26 Year
  Sex: Female

DRUGS (1)
  1. DIPHENHYDRAMINE. [Suspect]
     Active Substance: DIPHENHYDRAMINE
     Indication: PRODUCT USED FOR UNKNOWN INDICATION
     Route: 048

REACTIONS (7)
  - Status epilepticus [Recovered/Resolved]
  - Hypotension [Recovering/Resolving]
  - Body temperature increased [Recovering/Resolving]
  - Tachycardia [Recovering/Resolving]
  - Intentional overdose [Unknown]
  - Delirium [Unknown]
  - Anticholinergic syndrome [Unknown]
